FAERS Safety Report 8102643-0 (Version None)
Quarter: 2012Q1

REPORT INFORMATION
  Report Type: 
  Country: None (occurrence: None)
  Receive Date: 20120126
  Receipt Date: 20120116
  Transmission Date: 20120608
  Serious: Yes (Other)
  Sender: FDA-Public Use
  Company Number: 915175

PATIENT
  Age: 37 Year
  Sex: Male
  Weight: 90.7194 kg

DRUGS (1)
  1. COMPOUND W GEL [Suspect]
     Dosage: TOPICAL APPLICATION ONCE DAILY
     Route: 061
     Dates: start: 20111226, end: 20120104

REACTIONS (5)
  - APPLICATION SITE IRRITATION [None]
  - DRUG HYPERSENSITIVITY [None]
  - DEAFNESS [None]
  - TINNITUS [None]
  - APPLICATION SITE ERYTHEMA [None]
